FAERS Safety Report 16054924 (Version 2)
Quarter: 2019Q2

REPORT INFORMATION
  Report Type: Spontaneous
  Country: DE (occurrence: DE)
  Receive Date: 20190310
  Receipt Date: 20190406
  Transmission Date: 20190711
  Serious: Yes (Life-Threatening, Hospitalization, Other)
  Sender: FDA-Public Use
  Company Number: DE-ACCORD-111437

PATIENT
  Age: 30 Year
  Sex: Male

DRUGS (4)
  1. QUETIAPINE/QUETIAPINE FUMARATE [Concomitant]
     Indication: SCHIZOPHRENIA
  2. PIRENZEPINE/PIRENZEPINE DIHYDROCHLORIDE [Concomitant]
     Indication: SALIVARY HYPERSECRETION
     Dosage: 150 MG/DAY
  3. CLOZAPINE. [Suspect]
     Active Substance: CLOZAPINE
     Indication: SCHIZOPHRENIA
     Dosage: STEPWISE INCREASED TO?400 MG/D OVER A PERIOD OF 4 WEEKS
  4. FLUPENTIXOL/FLUPENTIXOL DECANOATE/FLUPENTIXOL DIHYDROCHLORIDE [Suspect]
     Active Substance: FLUPENTIXOL
     Indication: SCHIZOPHRENIA
     Dosage: 2 MG/DAY (DAYS 48-51)

REACTIONS (6)
  - Suicide attempt [Unknown]
  - Drug interaction [Unknown]
  - Hypothermia [Unknown]
  - Drug level decreased [Unknown]
  - Psychotic symptom [Recovered/Resolved]
  - Salivary hypersecretion [Unknown]
